FAERS Safety Report 11265570 (Version 2)
Quarter: 2015Q3

REPORT INFORMATION
  Report Type: Spontaneous
  Country: VN (occurrence: VN)
  Receive Date: 20150713
  Receipt Date: 20150716
  Transmission Date: 20151125
  Serious: Yes (Other)
  Sender: FDA-Public Use
  Company Number: VN-ROCHE-1606722

PATIENT
  Sex: Male

DRUGS (3)
  1. EPOETIN BETA [Concomitant]
     Active Substance: ERYTHROPOIETIN
     Dosage: 6000UI/WEEK
     Route: 058
  2. MIRCERA [Suspect]
     Active Substance: METHOXY POLYETHYLENE GLYCOL-EPOETIN BETA
     Indication: NEPHROGENIC ANAEMIA
     Route: 065
     Dates: start: 201502
  3. EPOETIN BETA [Concomitant]
     Active Substance: ERYTHROPOIETIN
     Dosage: 8000UI/WEEK
     Route: 065

REACTIONS (2)
  - Haemoglobin decreased [Unknown]
  - Drug effect decreased [Not Recovered/Not Resolved]
